FAERS Safety Report 4444194-0 (Version None)
Quarter: 2004Q3

REPORT INFORMATION
  Report Type: 
  Country: None (occurrence: None)
  Receive Date: 20040902
  Receipt Date: 20040816
  Transmission Date: 20050211
  Serious: Yes (Hospitalization)
  Sender: FDA-Public Use
  Company Number: USA040875597

PATIENT
  Age: 51 Year
  Sex: Male

DRUGS (5)
  1. HUMULIN N [Suspect]
     Dosage: 62 U DAY
     Dates: start: 19890101
  2. HUMULIN R [Concomitant]
  3. PAXIL [Concomitant]
  4. IRON [Concomitant]
  5. PROCRIT [Concomitant]

REACTIONS (7)
  - BLADDER CANCER [None]
  - BLOOD PRESSURE ABNORMAL [None]
  - DIALYSIS [None]
  - PHARMACEUTICAL PRODUCT COMPLAINT [None]
  - RENAL CELL CARCINOMA STAGE UNSPECIFIED [None]
  - RENAL FAILURE [None]
  - WEIGHT DECREASED [None]
